FAERS Safety Report 24090820 (Version 2)
Quarter: 2024Q3

REPORT INFORMATION
  Report Type: Spontaneous
  Country: BR (occurrence: BR)
  Receive Date: 20240715
  Receipt Date: 20240722
  Transmission Date: 20241017
  Serious: Yes (Life-Threatening, Hospitalization, Other)
  Sender: BRACCO
  Company Number: BR-BRACCO-2024BR04173

PATIENT
  Age: 45 Year
  Sex: Female

DRUGS (1)
  1. PROHANCE [Suspect]
     Active Substance: GADOTERIDOL
     Indication: Magnetic resonance imaging head
     Dosage: 10 ML, SINGLE
     Route: 042
     Dates: start: 20240702, end: 20240702

REACTIONS (11)
  - Loss of consciousness [Recovered/Resolved]
  - Blood pressure decreased [Recovered/Resolved]
  - Oxygen saturation decreased [Recovered/Resolved]
  - Thrombosis [Recovered/Resolved]
  - Bronchospasm [Recovered/Resolved]
  - Hyperhidrosis [Recovered/Resolved]
  - Pallor [Recovered/Resolved]
  - Abdominal pain [Recovered/Resolved]
  - Pelvic pain [Recovered/Resolved]
  - Headache [Recovered/Resolved]
  - Vision blurred [Recovered/Resolved]

NARRATIVE: CASE EVENT DATE: 20240702
